FAERS Safety Report 4847066-2 (Version None)
Quarter: 2005Q4

REPORT INFORMATION
  Report Type: 
  Country: None (occurrence: None)
  Receive Date: 20051207
  Receipt Date: 20051109
  Transmission Date: 20060501
  Serious: Yes (Other)
  Sender: FDA-Public Use
  Company Number: CA-JNJFOC-20051201131

PATIENT
  Age: 37 Year
  Sex: Male

DRUGS (5)
  1. INFLIXIMAB [Suspect]
     Route: 042
  2. INFLIXIMAB [Suspect]
     Indication: CROHN'S DISEASE
     Route: 042
  3. AZATHIOPRINE [Concomitant]
  4. 5-ASA [Concomitant]
  5. PREDNISONE [Concomitant]

REACTIONS (1)
  - MENINGITIS LISTERIA [None]
